FAERS Safety Report 20709771 (Version 2)
Quarter: 2022Q2

REPORT INFORMATION
  Report Type: Spontaneous
  Country: US (occurrence: None)
  Receive Date: 20220414
  Receipt Date: 20220527
  Transmission Date: 20220721
  Serious: No
  Sender: FDA-Public Use
  Company Number: 2022A142333

PATIENT
  Age: 24080 Day
  Sex: Female

DRUGS (1)
  1. EVUSHELD [Suspect]
     Active Substance: CILGAVIMAB\TIXAGEVIMAB
     Indication: COVID-19 prophylaxis
     Dosage: 150 MG DOSE 300.0MG ONCE/SINGLE ADMINISTRATION
     Route: 030
     Dates: start: 20220315

REACTIONS (3)
  - Muscle spasms [Recovered/Resolved]
  - Blood immunoglobulin G decreased [Unknown]
  - Product prescribing issue [Unknown]

NARRATIVE: CASE EVENT DATE: 20220315
